FAERS Safety Report 8301915-4 (Version None)
Quarter: 2012Q2

REPORT INFORMATION
  Report Type: 
  Country: None (occurrence: None)
  Receive Date: 20120418
  Receipt Date: 20120418
  Transmission Date: 20120825
  Serious: Yes (Other)
  Sender: FDA-Public Use
  Company Number: None

PATIENT
  Sex: Male
  Weight: 88.4514 kg

DRUGS (1)
  1. OLANZAPINE [Suspect]
     Indication: SCHIZOPHRENIA, PARANOID TYPE
     Dosage: 10MG ONCE QHS
     Dates: start: 20020101

REACTIONS (4)
  - DROOLING [None]
  - TREMOR [None]
  - CEREBROVASCULAR ACCIDENT [None]
  - PRODUCT SUBSTITUTION ISSUE [None]
